FAERS Safety Report 13546543 (Version 1)
Quarter: 2017Q2

REPORT INFORMATION
  Report Type: Spontaneous
  Country: FR (occurrence: FR)
  Receive Date: 20170515
  Receipt Date: 20170515
  Transmission Date: 20170830
  Serious: Yes (Other)
  Sender: FDA-Public Use
  Company Number: FR-PFIZER INC-2017204696

PATIENT
  Age: 58 Year
  Sex: Female

DRUGS (21)
  1. LYRICA [Suspect]
     Active Substance: PREGABALIN
     Indication: MUSCULOSKELETAL PAIN
     Dosage: 75 MG, DAILY
     Route: 048
     Dates: start: 20170301, end: 20170331
  2. GRANISETRON BRAUN [Concomitant]
     Dosage: 3 MG/24H FROM DAY 2 TO DAY 4
     Route: 042
     Dates: start: 20170407, end: 20170409
  3. SKENAN [Concomitant]
     Active Substance: MORPHINE SULFATE
     Indication: MUSCULOSKELETAL PAIN
     Dosage: UNK
     Dates: start: 201702
  4. ACTISKENAN [Concomitant]
     Active Substance: MORPHINE SULFATE
     Indication: MUSCULOSKELETAL PAIN
     Dosage: UNK
     Dates: start: 201702
  5. GRANISETRON BRAUN [Concomitant]
     Dosage: 3 MG IN SLOW INTRAVENOUS ROUTE THEN 6 MG DAILY WITH ELECTRIC SYRINGE PUMP, DAY 1
     Route: 042
     Dates: start: 20170406, end: 20170406
  6. EMEND [Concomitant]
     Active Substance: APREPITANT
     Indication: PROPHYLAXIS OF NAUSEA AND VOMITING
     Dosage: 125 MG, DAILY, DAY 1
     Dates: start: 20170314, end: 20170314
  7. CISPLATIN. [Concomitant]
     Active Substance: CISPLATIN
     Indication: LYMPHOMA
     Dosage: 75 MG, 2X/DAY, DAY 1
     Dates: start: 20170314, end: 20170314
  8. GRANISETRON BRAUN [Concomitant]
     Dosage: 3 MG/24H FROM DAY 2 TO DAY 4
     Route: 042
     Dates: start: 20170315, end: 20170317
  9. CYTARABINE. [Concomitant]
     Active Substance: CYTARABINE
     Indication: LYMPHOMA
     Dosage: 3000 MG, 2X/DAY, DAY 2
     Dates: start: 20170315, end: 20170315
  10. CYTARABINE. [Concomitant]
     Active Substance: CYTARABINE
     Dosage: 3000 MG, 2X/DAY, DAY 2
     Dates: start: 20170411, end: 20170411
  11. EMEND [Concomitant]
     Active Substance: APREPITANT
     Dosage: 125 MG, DAILY, DAY 1
     Dates: start: 20170406, end: 20170406
  12. EMEND [Concomitant]
     Active Substance: APREPITANT
     Dosage: 80 MG, DAILY, DAY 2 TO DAY 4
     Dates: start: 20170407, end: 20170409
  13. DEXAMETHASONE. [Concomitant]
     Active Substance: DEXAMETHASONE
     Dosage: 40 MG/DAY, DAY 1 TO DAY 4
     Dates: start: 20170406, end: 20170409
  14. LYRICA [Suspect]
     Active Substance: PREGABALIN
     Indication: NEURALGIA
     Dosage: UNK
     Route: 048
     Dates: start: 201702
  15. LYRICA [Suspect]
     Active Substance: PREGABALIN
     Dosage: 150 MG, DAILY
     Route: 048
     Dates: start: 20170401, end: 20170403
  16. EMEND [Concomitant]
     Active Substance: APREPITANT
     Dosage: 80 MG, DAILY, DAY 2 TO DAY 4
     Dates: start: 20170315, end: 20170317
  17. DEXAMETHASONE. [Concomitant]
     Active Substance: DEXAMETHASONE
     Indication: LYMPHOMA
     Dosage: 40 MG/DAY, DAY 1 TO DAY 4
     Dates: start: 20170314, end: 20170317
  18. GRANISETRON BRAUN [Concomitant]
     Indication: PROPHYLAXIS OF NAUSEA AND VOMITING
     Dosage: 3 MG IN SLOW INTRAVENOUS ROUTE THEN 6 MG DAILY WITH ELECTRIC SYRINGE PUMP, DAY 1
     Route: 042
     Dates: start: 20170314, end: 20170314
  19. LYRICA [Suspect]
     Active Substance: PREGABALIN
     Dosage: 200 MG, DAILY
     Route: 048
     Dates: start: 20170404, end: 20170410
  20. REVLIMID [Suspect]
     Active Substance: LENALIDOMIDE
     Indication: LYMPHOMA
     Dosage: 15 MG, DAILY
     Route: 048
     Dates: start: 20170406, end: 20170407
  21. CISPLATIN. [Concomitant]
     Active Substance: CISPLATIN
     Dosage: 75 MG, 2X/DAY, DAY 1
     Dates: start: 20170406, end: 20170406

REACTIONS (1)
  - Sinus bradycardia [Not Recovered/Not Resolved]

NARRATIVE: CASE EVENT DATE: 20170407
